FAERS Safety Report 7922558-8 (Version None)
Quarter: 2011Q4

REPORT INFORMATION
  Report Type: 
  Country: None (occurrence: None)
  Receive Date: 20111117
  Receipt Date: 20101019
  Transmission Date: 20120403
  Serious: No
  Sender: FDA-Public Use
  Company Number: US-ALLERGAN-1013418US

PATIENT
  Age: 67 Year
  Sex: Female

DRUGS (4)
  1. COMBIGAN [Suspect]
     Indication: RETINITIS
  2. COMBIGAN [Suspect]
     Indication: CATARACT
  3. XALATAN [Concomitant]
     Indication: GLAUCOMA
     Dosage: 1 GTT, QHS
     Route: 047
  4. COMBIGAN [Suspect]
     Indication: GLAUCOMA
     Dosage: 1 GTT, BID
     Route: 047
     Dates: start: 20100701

REACTIONS (1)
  - DRUG INEFFECTIVE [None]
